FAERS Safety Report 10022707 (Version 1)
Quarter: 2014Q1

REPORT INFORMATION
  Report Type: Spontaneous
  Country: US (occurrence: US)
  Receive Date: 20140319
  Receipt Date: 20140319
  Transmission Date: 20141002
  Serious: No
  Sender: FDA-Public Use
  Company Number: US-PFIZER INC-2014078490

PATIENT
  Age: 62 Year
  Sex: Male

DRUGS (2)
  1. CHANTIX [Suspect]
     Dosage: UNK
  2. CHANTIX [Suspect]
     Dosage: UNK, 2X/DAY

REACTIONS (3)
  - Lip swelling [Unknown]
  - Swelling face [Unknown]
  - Urticaria [Unknown]
